FAERS Safety Report 5873103-2 (Version None)
Quarter: 2008Q3

REPORT INFORMATION
  Report Type: 
  Country: None (occurrence: None)
  Receive Date: 20080902
  Receipt Date: 20080815
  Transmission Date: 20090109
  Serious: Yes (Other)
  Sender: FDA-Public Use
  Company Number: 8036160

PATIENT
  Age: 14 Decade
  Sex: Male

DRUGS (3)
  1. PREDNISOLONE [Suspect]
  2. DICLOFENAC SODIUM [Suspect]
     Indication: JUVENILE ARTHRITIS
     Dosage: 75 MG /D
  3. METHOTREXATE [Suspect]

REACTIONS (4)
  - DEHYDRATION [None]
  - HERPES ZOSTER [None]
  - RENAL FAILURE ACUTE [None]
  - VOMITING [None]
